FAERS Safety Report 24141010 (Version 2)
Quarter: 2024Q3

REPORT INFORMATION
  Report Type: Spontaneous
  Country: US (occurrence: US)
  Receive Date: 20240726
  Receipt Date: 20240920
  Transmission Date: 20241016
  Serious: Yes (Other)
  Sender: GRIFOLS
  Company Number: US-IGSA-BIG0029975

PATIENT
  Age: 32 Year
  Sex: Female

DRUGS (1)
  1. VISTASEAL [Suspect]
     Active Substance: FIBRINOGEN HUMAN\HUMAN THROMBIN
     Indication: Renal transplant
     Dosage: 10 MILLILITER, SINGLE
     Route: 065
     Dates: start: 20240401, end: 20240401

REACTIONS (2)
  - Cytomegalovirus viraemia [Unknown]
  - Suspected transmission of an infectious agent via product [Unknown]

NARRATIVE: CASE EVENT DATE: 20240528
